FAERS Safety Report 7633732-2 (Version None)
Quarter: 2011Q3

REPORT INFORMATION
  Report Type: 
  Country: None (occurrence: None)
  Receive Date: 20110714
  Receipt Date: 20101012
  Transmission Date: 20111222
  Serious: Yes (Other)
  Sender: FDA-Public Use
  Company Number: 2010SP054957

PATIENT
  Age: 60 Year
  Sex: Female

DRUGS (4)
  1. INTEGRILIN [Suspect]
     Indication: CORONARY ARTERIAL STENT INSERTION
     Dates: end: 20101001
  2. HEPARIN [Concomitant]
  3. PLAVIX [Concomitant]
  4. ASPIRIN [Concomitant]

REACTIONS (1)
  - GASTROINTESTINAL HAEMORRHAGE [None]
